FAERS Safety Report 5767894-9 (Version None)
Quarter: 2008Q2

REPORT INFORMATION
  Report Type: 
  Country: None (occurrence: None)
  Receive Date: 20080601
  Receipt Date: 20080226
  Transmission Date: 20081010
  Serious: No
  Sender: FDA-Public Use
  Company Number: US200802005969

PATIENT
  Age: 70 Year
  Sex: Female

DRUGS (9)
  1. BYETTA [Suspect]
     Dosage: 5 UG, DAILY (1/D), SUBCUTANEOUS
     Route: 058
     Dates: start: 20080106
  2. AMARYL [Concomitant]
  3. FUROSEMIDE [Concomitant]
  4. LEVOTHYROXINE SODIUM [Concomitant]
  5. LOTREL [Concomitant]
  6. GEMFIBROZIL [Concomitant]
  7. COLCHICINE (COLCHICINE) [Concomitant]
  8. ASPIRIN [Concomitant]
  9. CENTRUM SILVER (ASCORBIC ACID, CALCIUM, MINERALS NOS, RETINOL, TOCOPHE [Concomitant]

REACTIONS (4)
  - ANOREXIA [None]
  - DYSPEPSIA [None]
  - HYPOGLYCAEMIA [None]
  - TREMOR [None]
